FAERS Safety Report 9290768 (Version 3)
Quarter: 2013Q2

REPORT INFORMATION
  Report Type: Spontaneous
  Country: AU (occurrence: AU)
  Receive Date: 20130515
  Receipt Date: 20130626
  Transmission Date: 20140414
  Serious: Yes (Death)
  Sender: FDA-Public Use
  Company Number: AU-B.I. PHARMACEUTICALS,INC./RIDGEFIELD-2013-AU-00574AU

PATIENT
  Sex: Male

DRUGS (9)
  1. PRADAXA [Suspect]
     Indication: CEREBROVASCULAR ACCIDENT PROPHYLAXIS
     Dosage: 300 MG
     Dates: start: 20110908
  2. PRADAXA [Suspect]
     Indication: ATRIAL FIBRILLATION
  3. ALLOPURINOL [Concomitant]
  4. AMIODARONE [Concomitant]
  5. OLANZAPINE [Concomitant]
  6. PANADOL OSTEO [Concomitant]
  7. SERETIDE [Concomitant]
  8. VENTOLIN [Concomitant]
  9. ZOCOR [Concomitant]

REACTIONS (3)
  - Death [Fatal]
  - Syncope [Unknown]
  - Traumatic haemorrhage [Unknown]
